FAERS Safety Report 10094852 (Version 2)
Quarter: 2014Q2

REPORT INFORMATION
  Report Type: Spontaneous
  Country: FR (occurrence: FR)
  Receive Date: 20140422
  Receipt Date: 20140422
  Transmission Date: 20141212
  Serious: Yes (Other)
  Sender: FDA-Public Use
  Company Number: FR-TEVA-475539ISR

PATIENT
  Age: 72 Year
  Sex: Male

DRUGS (3)
  1. DOXAZOSINE TEVA LP 4 MG [Suspect]
     Indication: PROSTATIC DISORDER
     Dosage: 1 DOSAGE FORMS DAILY;
     Route: 048
  2. PANTOPRAZOLE 20 MG [Concomitant]
     Dosage: 1 DOSAGE FORMS DAILY;
     Route: 048
  3. ONBREZ 150 [Concomitant]
     Dosage: 1 DOSAGE FORMS DAILY;

REACTIONS (3)
  - Drug ineffective [Recovered/Resolved]
  - Pollakiuria [Recovered/Resolved]
  - Micturition disorder [Unknown]
